FAERS Safety Report 9907218 (Version 4)
Quarter: 2015Q2

REPORT INFORMATION
  Report Type: Spontaneous
  Country: US (occurrence: US)
  Receive Date: 20140218
  Receipt Date: 20150612
  Transmission Date: 20150821
  Serious: Yes (Other)
  Sender: FDA-Public Use
  Company Number: US-PFIZER INC-2014041872

PATIENT
  Age: 57 Year
  Sex: Female
  Weight: 122 kg

DRUGS (2)
  1. OXYGEN. [Concomitant]
     Active Substance: OXYGEN
     Dosage: AT NIGHT
  2. REVATIO [Suspect]
     Active Substance: SILDENAFIL CITRATE
     Indication: PULMONARY HYPERTENSION
     Dosage: 20 MG, 3X/DAY
     Route: 048

REACTIONS (9)
  - Fall [Unknown]
  - Sneezing [Unknown]
  - Lacrimation increased [Unknown]
  - Sinus congestion [Unknown]
  - Asthenia [Unknown]
  - Paranasal sinus hypersecretion [Unknown]
  - Dyspnoea [Unknown]
  - Paranasal sinus discomfort [Unknown]
  - Dizziness [Unknown]
